FAERS Safety Report 10722559 (Version 1)
Quarter: 2015Q1

REPORT INFORMATION
  Report Type: Spontaneous
  Country: CA (occurrence: CA)
  Receive Date: 20150120
  Receipt Date: 20150120
  Transmission Date: 20150721
  Serious: Yes (Other)
  Sender: FDA-Public Use
  Company Number: CA-AMGEN-CANSP2015003386

PATIENT
  Age: 76 Year
  Sex: Female
  Weight: 64.8 kg

DRUGS (1)
  1. PROLIA [Suspect]
     Active Substance: DENOSUMAB
     Indication: PRODUCT USED FOR UNKNOWN INDICATION
     Dosage: UNK UNK, QMO
     Route: 030

REACTIONS (4)
  - Myalgia [Recovered/Resolved]
  - Balance disorder [Recovered/Resolved]
  - Pain in jaw [Recovered/Resolved]
  - Asthenia [Recovered/Resolved]
